FAERS Safety Report 8154739-5 (Version None)
Quarter: 2012Q1

REPORT INFORMATION
  Report Type: 
  Country: None (occurrence: None)
  Receive Date: 20120221
  Receipt Date: 20120207
  Transmission Date: 20120608
  Serious: Yes (Other)
  Sender: FDA-Public Use
  Company Number: PHHY2012BR011699

PATIENT
  Sex: Female

DRUGS (1)
  1. ZELMAC [Suspect]
     Dosage: UNK
     Route: 048

REACTIONS (1)
  - MEMORY IMPAIRMENT [None]
